FAERS Safety Report 15750618 (Version 1)
Quarter: 2018Q4

REPORT INFORMATION
  Report Type: Spontaneous
  Country: US (occurrence: US)
  Receive Date: 20181221
  Receipt Date: 20181221
  Transmission Date: 20190205
  Serious: No
  Sender: FDA-Public Use
  Company Number: None

PATIENT
  Age: 33 Year
  Sex: Female
  Weight: 90 kg

DRUGS (1)
  1. MUPIROCIN OINTMENT 2% [Suspect]
     Active Substance: MUPIROCIN
     Indication: IMPETIGO
     Dosage: ?          QUANTITY:1 APPLICATION;?
     Route: 061
     Dates: start: 20181214, end: 20181215

REACTIONS (2)
  - Dermatitis contact [None]
  - Application site dermatitis [None]

NARRATIVE: CASE EVENT DATE: 20181214
